FAERS Safety Report 18429607 (Version 1)
Quarter: 2020Q4

REPORT INFORMATION
  Report Type: Other
  Country: RU (occurrence: RU)
  Receive Date: 20201026
  Receipt Date: 20201026
  Transmission Date: 20210114
  Serious: Yes (Other)
  Sender: FDA-Public Use
  Company Number: RU-INCYTE CORPORATION-2020IN010352

PATIENT

DRUGS (3)
  1. AMBROXOL [Concomitant]
     Active Substance: AMBROXOL
     Indication: PNEUMONIA
     Dosage: 30 MG, BID
     Route: 048
     Dates: start: 20201001
  2. JAKAVI [Suspect]
     Active Substance: RUXOLITINIB
     Indication: CORONAVIRUS INFECTION
     Dosage: 5 MG, BID
     Route: 048
     Dates: start: 20201001, end: 20201008
  3. COLCHICUM [Concomitant]
     Active Substance: COLCHICINE
     Indication: CORONAVIRUS INFECTION
     Dosage: 1 MG, QD
     Route: 048
     Dates: start: 20201001

REACTIONS (1)
  - International normalised ratio increased [Recovered/Resolved]

NARRATIVE: CASE EVENT DATE: 20201005
